FAERS Safety Report 24917977 (Version 5)
Quarter: 2025Q3

REPORT INFORMATION
  Report Type: Report from Study
  Country: US (occurrence: US)
  Receive Date: 20250203
  Receipt Date: 20250910
  Transmission Date: 20251020
  Serious: Yes (Death, Hospitalization, Other)
  Sender: TAKEDA
  Company Number: US-KAMADA LIMITED-2019US002688

PATIENT
  Sex: Female
  Weight: 73 kg

DRUGS (4)
  1. GLASSIA [Suspect]
     Active Substance: .ALPHA.1-PROTEINASE INHIBITOR HUMAN
     Indication: Alpha-1 antitrypsin deficiency
     Dosage: UNK, 1/WEEK
  2. GLASSIA [Suspect]
     Active Substance: .ALPHA.1-PROTEINASE INHIBITOR HUMAN
     Dosage: 60 MILLIGRAM/KILOGRAM, 1/WEEK
  3. GLASSIA [Suspect]
     Active Substance: .ALPHA.1-PROTEINASE INHIBITOR HUMAN
     Dosage: 60 MG/KG, 1/WEEK
     Dates: start: 20080103
  4. ELIQUIS [Suspect]
     Active Substance: APIXABAN
     Indication: Product used for unknown indication

REACTIONS (10)
  - Cerebral haemorrhage [Fatal]
  - Loss of consciousness [Fatal]
  - Fall [Unknown]
  - Arthritis infective [Recovering/Resolving]
  - Staphylococcal infection [Recovering/Resolving]
  - Pneumonia [Unknown]
  - Intestinal obstruction [Unknown]
  - Femur fracture [Recovering/Resolving]
  - Dysphagia [Unknown]
  - Asthenia [Unknown]
